FAERS Safety Report 23839720 (Version 1)
Quarter: 2024Q2

REPORT INFORMATION
  Report Type: Spontaneous
  Country: US (occurrence: US)
  Receive Date: 20240510
  Receipt Date: 20240510
  Transmission Date: 20240716
  Serious: No
  Sender: FDA-Public Use
  Company Number: US-ViiV Healthcare Limited-111062

PATIENT
  Sex: Male

DRUGS (2)
  1. TIVICAY [Suspect]
     Active Substance: DOLUTEGRAVIR SODIUM
     Indication: Product used for unknown indication
     Dosage: UNK
  2. METFORMIN [Concomitant]
     Active Substance: METFORMIN HYDROCHLORIDE
     Indication: Blood glucose increased
     Dosage: UNK

REACTIONS (7)
  - Abdominal discomfort [Unknown]
  - Blood glucose increased [Unknown]
  - Globulins decreased [Unknown]
  - T-lymphocyte count decreased [Unknown]
  - Brain fog [Unknown]
  - Skin reaction [Unknown]
  - Hypersensitivity [Unknown]
